FAERS Safety Report 19550182 (Version 1)
Quarter: 2021Q3

REPORT INFORMATION
  Report Type: Spontaneous
  Country: US (occurrence: US)
  Receive Date: 20210715
  Receipt Date: 20210715
  Transmission Date: 20211014
  Serious: Yes (Other)
  Sender: FDA-Public Use
  Company Number: None

PATIENT
  Sex: Male

DRUGS (1)
  1. INSULIN LISPRO (1 UNIT DIAL) 100UNIT/ML PEN?INJECTORS [Suspect]
     Active Substance: INSULIN LISPRO

REACTIONS (1)
  - Death [None]
